FAERS Safety Report 24800954 (Version 2)
Quarter: 2025Q1

REPORT INFORMATION
  Report Type: Spontaneous
  Country: US (occurrence: US)
  Receive Date: 20250102
  Receipt Date: 20250116
  Transmission Date: 20250409
  Serious: Yes (Hospitalization, Other)
  Sender: ABBVIE
  Company Number: US-ABBVIE-6068700

PATIENT
  Age: 90 Year
  Sex: Male

DRUGS (1)
  1. IMBRUVICA [Suspect]
     Active Substance: IBRUTINIB
     Indication: Chronic lymphocytic leukaemia
     Route: 048
     Dates: start: 20241204

REACTIONS (11)
  - Rehabilitation therapy [Unknown]
  - Hospitalisation [Unknown]
  - Discouragement [Unknown]
  - Somnolence [Unknown]
  - Urinary incontinence [Unknown]
  - Dizziness [Unknown]
  - Clostridium difficile infection [Unknown]
  - Weight decreased [Unknown]
  - Fatigue [Unknown]
  - Testicular swelling [Unknown]
  - Anal incontinence [Unknown]

NARRATIVE: CASE EVENT DATE: 20241201
